FAERS Safety Report 5727620-6 (Version None)
Quarter: 2008Q2

REPORT INFORMATION
  Report Type: 
  Country: None (occurrence: None)
  Receive Date: 20080430
  Receipt Date: 20080421
  Transmission Date: 20081010
  Serious: Yes (Hospitalization)
  Sender: FDA-Public Use
  Company Number: 2008BI002398

PATIENT
  Age: 54 Year
  Sex: Female

DRUGS (1)
  1. AVONEX [Suspect]
     Indication: MULTIPLE SCLEROSIS
     Dosage: 30 UG; QW; IM
     Route: 030
     Dates: start: 20030916, end: 20080301

REACTIONS (13)
  - ABDOMINAL PAIN UPPER [None]
  - BILIARY DYSKINESIA [None]
  - BREAST COSMETIC SURGERY [None]
  - BREAST INFECTION [None]
  - CHEST PAIN [None]
  - CHOLECYSTECTOMY [None]
  - GALLBLADDER ENLARGEMENT [None]
  - GALLBLADDER OEDEMA [None]
  - LIPOSUCTION [None]
  - MURPHY'S SIGN POSITIVE [None]
  - NAUSEA [None]
  - POSTOPERATIVE WOUND INFECTION [None]
  - PYREXIA [None]
